FAERS Safety Report 14177195 (Version 8)
Quarter: 2019Q1

REPORT INFORMATION
  Report Type: Spontaneous
  Country: US (occurrence: US)
  Receive Date: 20171110
  Receipt Date: 20190225
  Transmission Date: 20190417
  Serious: No
  Sender: FDA-Public Use
  Company Number: US-PFIZER INC-2017484697

PATIENT
  Age: 65 Year
  Sex: Female
  Weight: 79 kg

DRUGS (7)
  1. XELJANZ XR [Suspect]
     Active Substance: TOFACITINIB CITRATE
     Indication: RHEUMATOID ARTHRITIS
     Dosage: 11 MG, 1X/DAY
     Route: 048
     Dates: start: 2017
  2. METHOTREXATE SODIUM. [Concomitant]
     Active Substance: METHOTREXATE SODIUM
     Dosage: 20 MG, WEEKLY (8 TABLETS)
     Route: 048
  3. COLCHICINE. [Concomitant]
     Active Substance: COLCHICINE
     Dosage: 0.6 MG, DAILY
     Route: 048
  4. FOLIC ACID. [Concomitant]
     Active Substance: FOLIC ACID
     Indication: ALOPECIA
     Dosage: UNK
  5. LISINOPRIL. [Concomitant]
     Active Substance: LISINOPRIL
     Indication: BLOOD PRESSURE ABNORMAL
     Dosage: 20 MG, UNK
  6. PREDNISONE. [Concomitant]
     Active Substance: PREDNISONE
     Dosage: 5 MG, DAILY
     Route: 048
  7. LEUCOVORIN. [Concomitant]
     Active Substance: LEUCOVORIN
     Indication: ALOPECIA
     Dosage: UNK

REACTIONS (9)
  - Dyspnoea [Recovered/Resolved]
  - Feeling abnormal [Recovered/Resolved]
  - Arthralgia [Unknown]
  - Conjunctivitis [Unknown]
  - Malaise [Recovered/Resolved]
  - Pain in extremity [Unknown]
  - Fatigue [Recovered/Resolved]
  - Herpes zoster [Unknown]
  - Rash papular [Unknown]

NARRATIVE: CASE EVENT DATE: 20180125
